FAERS Safety Report 5153596-9 (Version None)
Quarter: 2006Q4

REPORT INFORMATION
  Report Type: 
  Country: None (occurrence: None)
  Receive Date: 20061113
  Receipt Date: 20061027
  Transmission Date: 20070319
  Serious: Yes (Other)
  Sender: FDA-Public Use
  Company Number: 8020021

PATIENT
  Age: 63 Year
  Sex: Female
  Weight: 51 kg

DRUGS (4)
  1. LEVETIRACETAM [Suspect]
     Dosage: 500 MG 2/D PO
     Route: 048
     Dates: start: 20060807, end: 20060915
  2. CEPHALEXIN [Concomitant]
  3. LAMOTRIGINE [Concomitant]
  4. VALPROATE SODIUM [Concomitant]

REACTIONS (1)
  - THROMBOCYTOPENIA [None]
